FAERS Safety Report 7321455-9 (Version None)
Quarter: 2011Q1

REPORT INFORMATION
  Report Type: 
  Country: None (occurrence: None)
  Receive Date: 20110228
  Receipt Date: 20100514
  Transmission Date: 20110831
  Serious: Yes (Other)
  Sender: FDA-Public Use
  Company Number: US-PFIZER INC-2010064203

PATIENT
  Sex: Female

DRUGS (3)
  1. CITALOPRAM HYDROBROMIDE [Concomitant]
     Dosage: UNK
  2. GEODON [Suspect]
     Indication: DEPRESSION
     Dosage: 20 MG, 1X/DAY
  3. CLONAZEPAM [Concomitant]
     Dosage: UNK

REACTIONS (5)
  - HEPATIC STEATOSIS [None]
  - IRON DEFICIENCY [None]
  - VITAMIN D DECREASED [None]
  - BLOOD FOLATE DECREASED [None]
  - HAEMOGLOBIN INCREASED [None]
